FAERS Safety Report 14615354 (Version 1)
Quarter: 2018Q1

REPORT INFORMATION
  Report Type: Spontaneous
  Country: FR (occurrence: FR)
  Receive Date: 20180308
  Receipt Date: 20180308
  Transmission Date: 20180509
  Serious: Yes (Hospitalization)
  Sender: FDA-Public Use
  Company Number: FR-009507513-1802FRA014055

PATIENT
  Age: 27 Year
  Sex: Female
  Weight: 45 kg

DRUGS (1)
  1. NEXPLANON [Suspect]
     Active Substance: ETONOGESTREL
     Indication: CONTRACEPTION
     Dosage: 1 DF, UNK
     Route: 058
     Dates: start: 20160407, end: 20180214

REACTIONS (5)
  - Dyspnoea [Recovered/Resolved]
  - Device dislocation [Recovered/Resolved]
  - Chest pain [Recovered/Resolved]
  - Paraesthesia [Recovered/Resolved]
  - Palpitations [Recovered/Resolved]

NARRATIVE: CASE EVENT DATE: 201609
